FAERS Safety Report 16441151 (Version 3)
Quarter: 2019Q2

REPORT INFORMATION
  Report Type: Spontaneous
  Country: US (occurrence: US)
  Receive Date: 20190617
  Receipt Date: 20190617
  Transmission Date: 20190711
  Serious: Yes (Hospitalization)
  Sender: FDA-Public Use
  Company Number: US-CELGENEUS-USA-20190205379

PATIENT
  Age: 73 Year
  Sex: Female

DRUGS (1)
  1. REVLIMID [Suspect]
     Active Substance: LENALIDOMIDE
     Indication: PLASMA CELL MYELOMA
     Dosage: 10 MILLIGRAM
     Route: 048
     Dates: start: 20190111

REACTIONS (6)
  - Fall [Unknown]
  - Cardiac disorder [Unknown]
  - Infection [Unknown]
  - Loss of consciousness [Unknown]
  - Arrhythmia [Unknown]
  - Asthenia [Unknown]

NARRATIVE: CASE EVENT DATE: 201902
